FAERS Safety Report 11091023 (Version 1)
Quarter: 2015Q2

REPORT INFORMATION
  Report Type: Spontaneous
  Country: US (occurrence: None)
  Receive Date: 20150504
  Receipt Date: 20150504
  Transmission Date: 20150821
  Serious: Yes (Other)
  Sender: FDA-Public Use
  Company Number: None

PATIENT
  Age: 66 Year
  Sex: Female
  Weight: 112.04 kg

DRUGS (22)
  1. TEFLARO [Suspect]
     Active Substance: CEFTAROLINE FOSAMIL
     Indication: STAPHYLOCOCCAL INFECTION
     Dosage: 600MG, BID, INTRAVENOUS
     Route: 042
     Dates: start: 20150406, end: 20150428
  2. IBUPROFEN. [Concomitant]
     Active Substance: IBUPROFEN
  3. NITROGLYCERIN S.L. TABS [Concomitant]
  4. PROBIOTIC [Concomitant]
     Active Substance: PROBIOTICS NOS
  5. LAMOTRIGINE. [Concomitant]
     Active Substance: LAMOTRIGINE
  6. LORAZEPAM. [Concomitant]
     Active Substance: LORAZEPAM
  7. FLUTICASONE NASAL SPRAY [Concomitant]
     Active Substance: FLUTICASONE\FLUTICASONE PROPIONATE
  8. SENOKOT-S [Concomitant]
     Active Substance: DOCUSATE SODIUM\SENNOSIDES
  9. VITAMIN B12 [Concomitant]
     Active Substance: CYANOCOBALAMIN
  10. VITAMIN D [Concomitant]
     Active Substance: CHOLECALCIFEROL
  11. CYMBALTA [Concomitant]
     Active Substance: DULOXETINE HYDROCHLORIDE
  12. GABAPENTIN. [Concomitant]
     Active Substance: GABAPENTIN
  13. LORATIDINE [Concomitant]
     Active Substance: LORATADINE
  14. ACETAMINOPHEN. [Concomitant]
     Active Substance: ACETAMINOPHEN
  15. L-ARGININE [Concomitant]
     Active Substance: ARGININE
  16. LOSARTAN [Concomitant]
     Active Substance: LOSARTAN
  17. OXYCODONE [Concomitant]
     Active Substance: OXYCODONE
  18. PANTOPRAZOLE [Concomitant]
     Active Substance: PANTOPRAZOLE SODIUM
  19. TEFLARO [Suspect]
     Active Substance: CEFTAROLINE FOSAMIL
     Indication: ARTHRITIS INFECTIVE
     Dosage: 600MG, BID, INTRAVENOUS
     Route: 042
     Dates: start: 20150406, end: 20150428
  20. LOW DOSE ASA [Concomitant]
  21. BIOTIN [Concomitant]
     Active Substance: BIOTIN
  22. MVI TAB [Concomitant]

REACTIONS (2)
  - Leukopenia [None]
  - Neutropenia [None]

NARRATIVE: CASE EVENT DATE: 20150427
